FAERS Safety Report 10142333 (Version 1)
Quarter: 2014Q2

REPORT INFORMATION
  Report Type: Spontaneous
  Country: JP (occurrence: JP)
  Receive Date: 20140430
  Receipt Date: 20140430
  Transmission Date: 20141212
  Serious: Yes (Disabling)
  Sender: FDA-Public Use
  Company Number: JP-009507513-1404JPN013692

PATIENT
  Sex: Female

DRUGS (2)
  1. FOSAMAC TABLETS 35MG [Suspect]
     Dosage: TAKEN AT 6 PM AND THEN AFTER 45 MINUTES, DAILY DOSE UNKNOWN
     Route: 048
  2. [THERAPY UNSPECIFIED] [Concomitant]
     Dosage: DAILY DOSE UNKNOWN
     Route: 048

REACTIONS (5)
  - Bone fissure [Unknown]
  - Spinal fracture [Unknown]
  - Fall [Unknown]
  - Body height decreased [Unknown]
  - Medication error [Unknown]
